FAERS Safety Report 9902763 (Version 2)
Quarter: 2014Q1

REPORT INFORMATION
  Report Type: Report from Study
  Country: US (occurrence: US)
  Receive Date: 20140217
  Receipt Date: 20140304
  Transmission Date: 20141002
  Serious: Yes (Hospitalization, Other)
  Sender: FDA-Public Use
  Company Number: PHEH2014US003086

PATIENT
  Age: 77 Year
  Sex: Female

DRUGS (1)
  1. EXELON PATCH [Suspect]
     Dosage: 13.3 MG, UNK
     Route: 062

REACTIONS (2)
  - Urinary tract obstruction [Unknown]
  - Nephrolithiasis [Unknown]
